FAERS Safety Report 9148001 (Version 2)
Quarter: 2013Q2

REPORT INFORMATION
  Report Type: Spontaneous
  Country: US (occurrence: US)
  Receive Date: 20130308
  Receipt Date: 20130411
  Transmission Date: 20140414
  Serious: No
  Sender: FDA-Public Use
  Company Number: US-B.I. PHARMACEUTICALS,INC./RIDGEFIELD-2013-BI-05914BP

PATIENT
  Age: 76 Year
  Sex: Male

DRUGS (14)
  1. SPIRIVA [Suspect]
     Indication: CHRONIC OBSTRUCTIVE PULMONARY DISEASE
     Dosage: 18 MCG
     Route: 055
     Dates: start: 2012
  2. ATROVENT INHALATION SOLUTION [Suspect]
     Indication: CHRONIC OBSTRUCTIVE PULMONARY DISEASE
     Dosage: 34 MCG
     Route: 055
     Dates: start: 2011
  3. VITAMIN [Concomitant]
     Route: 048
  4. XANAX [Concomitant]
     Route: 048
  5. SYMBICORT [Concomitant]
     Route: 055
  6. ALBUTEROL [Concomitant]
     Route: 055
  7. TAMSULOSIN [Concomitant]
     Indication: PROSTATOMEGALY
     Route: 048
  8. LEVOTHYROXINE [Concomitant]
     Route: 048
  9. ASPIRIN [Concomitant]
     Dosage: 81 MG
     Route: 048
  10. OMEPRAZOLE [Concomitant]
     Route: 048
  11. WATER PILL [Concomitant]
     Route: 048
  12. LISINOPRIL [Concomitant]
     Indication: HYPERTENSION
     Route: 048
  13. METOPROLOL [Concomitant]
     Route: 048
  14. ATORVASTATIN [Concomitant]
     Indication: BLOOD CHOLESTEROL INCREASED
     Route: 048

REACTIONS (4)
  - Dyspnoea [Not Recovered/Not Resolved]
  - Product quality issue [Recovered/Resolved]
  - Drug ineffective [Unknown]
  - Product quality issue [Unknown]
